FAERS Safety Report 14153728 (Version 2)
Quarter: 2018Q1

REPORT INFORMATION
  Report Type: Spontaneous
  Country: US (occurrence: US)
  Receive Date: 20171102
  Receipt Date: 20180201
  Transmission Date: 20180508
  Serious: No
  Sender: FDA-Public Use
  Company Number: US-SA-2017SA207323

PATIENT
  Age: 76 Year
  Sex: Female

DRUGS (6)
  1. ALIROCUMAB PREFILLED PEN [Suspect]
     Active Substance: ALIROCUMAB
     Indication: VENTRICULAR DYSFUNCTION
     Dates: start: 20170505
  2. PRALUENT [Suspect]
     Active Substance: ALIROCUMAB
     Indication: VENTRICULAR DYSFUNCTION
     Route: 058
     Dates: start: 20170505
  3. PRALUENT [Suspect]
     Active Substance: ALIROCUMAB
     Indication: HYPERLIPIDAEMIA
     Route: 058
     Dates: start: 20170505
  4. PRALUENT [Suspect]
     Active Substance: ALIROCUMAB
     Indication: HYPERTENSION
     Route: 058
     Dates: start: 20170505
  5. ALIROCUMAB PREFILLED PEN [Suspect]
     Active Substance: ALIROCUMAB
     Indication: HYPERTENSION
     Dates: start: 20170505
  6. ALIROCUMAB PREFILLED PEN [Suspect]
     Active Substance: ALIROCUMAB
     Indication: HYPERLIPIDAEMIA
     Dates: start: 20170505

REACTIONS (2)
  - Device issue [Unknown]
  - Application site injury [Unknown]

NARRATIVE: CASE EVENT DATE: 20171020
